FAERS Safety Report 14206417 (Version 3)
Quarter: 2017Q4

REPORT INFORMATION
  Report Type: Report from Study
  Country: FR (occurrence: FR)
  Receive Date: 20171120
  Receipt Date: 20171220
  Transmission Date: 20180321
  Serious: Yes (Hospitalization)
  Sender: FDA-Public Use
  Company Number: FR-GILEAD-2017-0305513

PATIENT
  Age: 72 Year
  Sex: Male
  Weight: 59 kg

DRUGS (2)
  1. GAZYVARO [Concomitant]
     Active Substance: OBINUTUZUMAB
     Indication: WALDENSTROM^S MACROGLOBULINAEMIA
     Dosage: 1000 MG, CYCLICAL
     Route: 042
     Dates: start: 20170821, end: 20171016
  2. IDELALISIB [Suspect]
     Active Substance: IDELALISIB
     Indication: WALDENSTROM^S MACROGLOBULINAEMIA
     Dosage: 300 MG, QD
     Route: 048
     Dates: start: 20170821, end: 20171102

REACTIONS (1)
  - Psoriasis [Not Recovered/Not Resolved]

NARRATIVE: CASE EVENT DATE: 20171106
